FAERS Safety Report 9729264 (Version 1)
Quarter: 2013Q4

REPORT INFORMATION
  Report Type: Spontaneous
  Country: US (occurrence: US)
  Receive Date: 20131204
  Receipt Date: 20131204
  Transmission Date: 20140711
  Serious: Yes (Other)
  Sender: FDA-Public Use
  Company Number: US-BAYER-2013-147299

PATIENT
  Age: 41 Year
  Sex: Female

DRUGS (5)
  1. YAZ [Suspect]
  2. AZMACORT [Concomitant]
  3. ALBUTEROL [Concomitant]
  4. FIORICET [Concomitant]
  5. ATIVAN [Concomitant]
     Dosage: 0.5 MG, UNK

REACTIONS (1)
  - Pulmonary embolism [None]
